FAERS Safety Report 7164813-8 (Version None)
Quarter: 2010Q4

REPORT INFORMATION
  Report Type: 
  Country: None (occurrence: None)
  Receive Date: 20101215
  Receipt Date: 20101206
  Transmission Date: 20110411
  Serious: Yes (Hospitalization)
  Sender: FDA-Public Use
  Company Number: DE-PFIZER INC-2010164656

PATIENT
  Age: 76 Year
  Sex: Male
  Weight: 82.6 kg

DRUGS (2)
  1. TEMSIROLIMUS [Suspect]
     Dosage: 15 MG, WEEKLY
     Route: 042
     Dates: start: 20101124
  2. DOCETAXEL [Suspect]
     Indication: PROSTATE CANCER
     Dosage: 120 MG, UNK
     Route: 042
     Dates: start: 20101124

REACTIONS (1)
  - FEBRILE NEUTROPENIA [None]
